FAERS Safety Report 12736231 (Version 1)
Quarter: 2016Q3

REPORT INFORMATION
  Report Type: Spontaneous
  Country: GB (occurrence: GB)
  Receive Date: 20160912
  Receipt Date: 20160912
  Transmission Date: 20161109
  Serious: Yes (Other)
  Sender: FDA-Public Use
  Company Number: GB-PFIZER INC-2016421376

PATIENT
  Age: 81 Year
  Sex: Female

DRUGS (2)
  1. ASPIRIN /00002701/ [Interacting]
     Active Substance: ASPIRIN
     Indication: PSORIASIS
     Dosage: 300 MG, DAILY
  2. METHOTREXATE SODIUM. [Suspect]
     Active Substance: METHOTREXATE SODIUM
     Indication: PSORIASIS
     Dosage: UNK

REACTIONS (2)
  - Drug interaction [Unknown]
  - Toxic epidermal necrolysis [Unknown]
